FAERS Safety Report 5814064-1 (Version None)
Quarter: 2008Q3

REPORT INFORMATION
  Report Type: 
  Country: None (occurrence: None)
  Receive Date: 20080717
  Receipt Date: 20080627
  Transmission Date: 20090109
  Serious: No
  Sender: FDA-Public Use
  Company Number: US-BOEHRINGER INGELHEIM GMBH, GERMANY-2008-BP-10056BP

PATIENT
  Sex: Female

DRUGS (12)
  1. AGGRENOX [Suspect]
     Indication: CEREBROVASCULAR ACCIDENT PROPHYLAXIS
     Dosage: 50MG/400MG
     Route: 048
     Dates: start: 20080301
  2. PLAVIX [Concomitant]
  3. ENDOCORT [Concomitant]
  4. LISINOPRIL [Concomitant]
  5. METFORMIN HCL [Concomitant]
  6. ALBUTEROL [Concomitant]
  7. PULMICORT-100 [Concomitant]
  8. LANTUS [Concomitant]
  9. GLIMEPIRIDE [Concomitant]
  10. ACTOS [Concomitant]
  11. MAGNESIUM OXIDE [Concomitant]
  12. PROAIR HFA [Concomitant]
     Route: 055

REACTIONS (4)
  - ABDOMINAL PAIN [None]
  - MALAISE [None]
  - NAUSEA [None]
  - VOMITING [None]
